FAERS Safety Report 8154672-9 (Version None)
Quarter: 2012Q1

REPORT INFORMATION
  Report Type: 
  Country: None (occurrence: None)
  Receive Date: 20120221
  Receipt Date: 20120206
  Transmission Date: 20120608
  Serious: Yes (Hospitalization)
  Sender: FDA-Public Use
  Company Number: CHPA2012US002735

PATIENT
  Age: 61 Year
  Sex: Female

DRUGS (1)
  1. EXCEDRIN (MIGRAINE) [Suspect]
     Indication: HEADACHE
     Dosage: RECOMMENDED DOSE, UNK
     Route: 048
     Dates: start: 20100501, end: 20100501

REACTIONS (2)
  - ABDOMINAL PAIN UPPER [None]
  - COLITIS [None]
